FAERS Safety Report 8849966 (Version 17)
Quarter: 2014Q3

REPORT INFORMATION
  Report Type: Spontaneous
  Country: US (occurrence: US)
  Receive Date: 20121019
  Receipt Date: 20140718
  Transmission Date: 20150326
  Serious: Yes (Hospitalization, Other)
  Sender: FDA-Public Use
  Company Number: US-JNJFOC-20111104960

PATIENT
  Age: 62 Year
  Sex: Female
  Weight: 62.7 kg

DRUGS (19)
  1. DIAZEPAM. [Concomitant]
     Active Substance: DIAZEPAM
     Indication: ANXIETY
     Route: 065
     Dates: start: 2000, end: 2011
  2. ENDOCET [Concomitant]
     Active Substance: ACETAMINOPHEN\OXYCODONE HYDROCHLORIDE
     Indication: PAIN
     Route: 065
     Dates: start: 1990
  3. TYLENOL [Suspect]
     Active Substance: ACETAMINOPHEN
     Indication: PRODUCT USED FOR UNKNOWN INDICATION
     Dosage: 2-3 DOSAGE, EVERY FEW HOURS
     Route: 048
     Dates: start: 20091101, end: 20091106
  4. EFFEXOR [Concomitant]
     Active Substance: VENLAFAXINE HYDROCHLORIDE
     Indication: DEPRESSION
     Route: 065
     Dates: start: 2013
  5. ZOLPIDEM [Concomitant]
     Active Substance: ZOLPIDEM\ZOLPIDEM TARTRATE
     Indication: INSOMNIA
     Route: 065
     Dates: start: 2000
  6. TYLENOL [Suspect]
     Active Substance: ACETAMINOPHEN
     Indication: DISCOMFORT
     Dosage: 2-3 DOSAGE, EVERY FEW HOURS
     Route: 048
     Dates: start: 20091101, end: 20091106
  7. TYLENOL [Suspect]
     Active Substance: ACETAMINOPHEN
     Indication: DISCOMFORT
     Route: 048
     Dates: start: 20090915, end: 20091015
  8. OXYCODONE AND ACETAMINOPHEN [Suspect]
     Active Substance: ACETAMINOPHEN\OXYCODONE\OXYCODONE HYDROCHLORIDE
     Indication: PRODUCT USED FOR UNKNOWN INDICATION
     Route: 048
     Dates: start: 2009
  9. EFFEXOR [Concomitant]
     Active Substance: VENLAFAXINE HYDROCHLORIDE
     Indication: ANXIETY
     Route: 065
     Dates: start: 2013
  10. CELEBREX [Concomitant]
     Active Substance: CELECOXIB
     Indication: PAIN
     Route: 065
     Dates: start: 2008
  11. DARVOCET [Concomitant]
     Active Substance: ACETAMINOPHEN\PROPOXYPHENE HYDROCHLORIDE
     Indication: ANXIETY
     Route: 065
  12. OXY  IR [Concomitant]
     Active Substance: OXYCODONE HYDROCHLORIDE
     Route: 065
  13. TYLENOL [Suspect]
     Active Substance: ACETAMINOPHEN
     Indication: PRODUCT USED FOR UNKNOWN INDICATION
     Route: 048
     Dates: start: 20090915, end: 20091015
  14. OXYCONTIN [Concomitant]
     Active Substance: OXYCODONE HYDROCHLORIDE
     Indication: PAIN
     Route: 065
     Dates: start: 2012
  15. FLEXERIL [Concomitant]
     Active Substance: CYCLOBENZAPRINE HYDROCHLORIDE
     Route: 048
  16. OXYCONTIN [Concomitant]
     Active Substance: OXYCODONE HYDROCHLORIDE
     Indication: PAIN
     Route: 065
     Dates: start: 20090917, end: 20090924
  17. ACTONEL [Concomitant]
     Active Substance: RISEDRONATE SODIUM
     Indication: OSTEOPOROSIS
     Route: 065
  18. DIAZEPAM. [Concomitant]
     Active Substance: DIAZEPAM
     Indication: DEPRESSION
     Route: 065
     Dates: start: 2000, end: 2011
  19. CALCIUM AND VITAMIN D [Concomitant]
     Active Substance: CALCIUM\VITAMIN D
     Route: 048

REACTIONS (22)
  - Coagulopathy [Recovering/Resolving]
  - Ascites [Recovering/Resolving]
  - Overdose [Unknown]
  - Renal failure acute [Recovering/Resolving]
  - Encephalopathy [Unknown]
  - Abdominal pain [Recovering/Resolving]
  - Septic shock [Recovering/Resolving]
  - Metabolic acidosis [Recovering/Resolving]
  - Crohn^s disease [Recovering/Resolving]
  - Haematochezia [Unknown]
  - Hypotension [Recovering/Resolving]
  - Hypoglycaemia [Recovering/Resolving]
  - Pneumonia aspiration [Recovering/Resolving]
  - Colitis [Recovering/Resolving]
  - Injury [Unknown]
  - Mental status changes [Unknown]
  - Anaemia [Recovering/Resolving]
  - Urinary tract infection [Unknown]
  - Haematemesis [Unknown]
  - Acute hepatic failure [Recovering/Resolving]
  - Respiratory failure [Recovering/Resolving]
  - Atelectasis [Unknown]

NARRATIVE: CASE EVENT DATE: 200911
